FAERS Safety Report 8457157-5 (Version None)
Quarter: 2012Q2

REPORT INFORMATION
  Report Type: 
  Country: None (occurrence: None)
  Receive Date: 20120621
  Receipt Date: 20120614
  Transmission Date: 20120825
  Serious: Yes (Hospitalization)
  Sender: FDA-Public Use
  Company Number: US-PFIZER INC-2012144585

PATIENT
  Age: 18 Year
  Sex: Male

DRUGS (6)
  1. VANCOMYCIN HYCHLORIDE [Suspect]
     Indication: ANTIBIOTIC RESISTANT STAPHYLOCOCCUS TEST POSITIVE
     Dosage: 1.5G (19 MG/KG), EVERY 12 HRS
     Route: 042
  2. RIFAMPIN [Concomitant]
     Indication: STAPHYLOCOCCAL INFECTION
     Dosage: 300MG, EVERY 12 HOURS
     Route: 048
  3. VANCOMYCIN HYCHLORIDE [Suspect]
     Indication: STAPHYLOCOCCAL INFECTION
     Dosage: 1G (13 MG/KG), EVERY 12 HOUR
     Route: 042
  4. MEROPENEM [Concomitant]
     Indication: STAPHYLOCOCCAL INFECTION
     Dosage: 1G, 3X/DAY
     Route: 042
  5. VANCOMYCIN HYCHLORIDE [Suspect]
     Dosage: 1G, EVERY 12 HRS
     Route: 042
  6. RIFAMPIN [Concomitant]
     Dosage: 300MG, 2X/DAY
     Route: 048

REACTIONS (3)
  - NEUTROPENIA [None]
  - PRURITUS GENERALISED [None]
  - LEUKOPENIA [None]
